FAERS Safety Report 7305848-1 (Version None)
Quarter: 2011Q1

REPORT INFORMATION
  Report Type: 
  Country: None (occurrence: None)
  Receive Date: 20110222
  Receipt Date: 20110119
  Transmission Date: 20110831
  Serious: Yes (Other)
  Sender: FDA-Public Use
  Company Number: GR-ROCHE-754572

PATIENT
  Age: 26 Year
  Sex: Male

DRUGS (4)
  1. VIBRAMYCIN [Concomitant]
  2. ZINADOL [Concomitant]
  3. ZITHROMAX [Concomitant]
  4. ROCEPHIN [Suspect]
     Route: 050

REACTIONS (1)
  - URINARY TRACT INFECTION [None]
